FAERS Safety Report 7926111-1 (Version None)
Quarter: 2011Q4

REPORT INFORMATION
  Report Type: 
  Country: None (occurrence: None)
  Receive Date: 20111118
  Receipt Date: 20110418
  Transmission Date: 20120403
  Serious: No
  Sender: FDA-Public Use
  Company Number: US-AMGEN-USASP2011020289

PATIENT
  Age: 69 Year
  Sex: Female

DRUGS (2)
  1. ENBREL [Suspect]
     Indication: RHEUMATOID ARTHRITIS
     Dosage: 50 MG, QWK
     Dates: start: 20110228, end: 20110307
  2. HUMIRA [Concomitant]

REACTIONS (4)
  - RASH MACULO-PAPULAR [None]
  - BACK PAIN [None]
  - DRUG INEFFECTIVE [None]
  - MUSCLE ATROPHY [None]
